FAERS Safety Report 4530084-1 (Version None)
Quarter: 2004Q4

REPORT INFORMATION
  Report Type: 
  Country: None (occurrence: None)
  Receive Date: 20041215
  Receipt Date: 20041215
  Transmission Date: 20050328
  Serious: Yes (Hospitalization)
  Sender: FDA-Public Use
  Company Number: None

PATIENT
  Age: 74 Year
  Sex: Male

DRUGS (2)
  1. GATIFLOXACIN [Suspect]
     Dosage: 200MG  QD ORAL
     Route: 048
     Dates: start: 20040525, end: 20040531
  2. ROSIGLITAZONE MALEATE [Concomitant]

REACTIONS (1)
  - HYPOGLYCAEMIA [None]
